FAERS Safety Report 21239264 (Version 1)
Quarter: 2022Q3

REPORT INFORMATION
  Report Type: Spontaneous
  Country: US (occurrence: US)
  Receive Date: 20220822
  Receipt Date: 20220822
  Transmission Date: 20221026
  Serious: No
  Sender: FDA-Public Use
  Company Number: US-BIOGEN-2022BI01149217

PATIENT
  Sex: Male

DRUGS (1)
  1. TECFIDERA [Suspect]
     Active Substance: DIMETHYL FUMARATE
     Indication: Multiple sclerosis
     Route: 050
     Dates: start: 20220804, end: 20220816

REACTIONS (6)
  - Hypoaesthesia [Unknown]
  - Pyrexia [Unknown]
  - Ocular discomfort [Unknown]
  - Malaise [Unknown]
  - Paraesthesia [Unknown]
  - Diarrhoea [Unknown]
